FAERS Safety Report 5399432-7 (Version None)
Quarter: 2007Q3

REPORT INFORMATION
  Report Type: 
  Country: None (occurrence: None)
  Receive Date: 20070727
  Receipt Date: 20070726
  Transmission Date: 20080115
  Serious: Yes (Other)
  Sender: FDA-Public Use
  Company Number: A0666376A

PATIENT
  Age: 57 Year
  Sex: Male

DRUGS (2)
  1. NICORETTE [Suspect]
     Indication: SMOKING CESSATION THERAPY
     Route: 002
  2. EPANUTIN [Suspect]
     Indication: EPILEPSY
     Dates: start: 20030101

REACTIONS (3)
  - BLOOD PRESSURE DECREASED [None]
  - DRUG INTERACTION [None]
  - EPILEPSY [None]
